FAERS Safety Report 24319854 (Version 2)
Quarter: 2024Q4

REPORT INFORMATION
  Report Type: Spontaneous
  Country: US (occurrence: US)
  Receive Date: 20240914
  Receipt Date: 20241224
  Transmission Date: 20250115
  Serious: No
  Sender: SANOFI AVENTIS
  Company Number: US-SA-2024SA263079

PATIENT
  Age: 57 Year
  Sex: Female
  Weight: 48.98 kg

DRUGS (2)
  1. DUPIXENT [Suspect]
     Active Substance: DUPILUMAB
     Indication: Dermatitis atopic
     Dosage: 300 MG, QOW
     Route: 058
  2. VUMERITY [Suspect]
     Active Substance: DIROXIMEL FUMARATE

REACTIONS (6)
  - Fatigue [Recovering/Resolving]
  - Abdominal discomfort [Unknown]
  - Depressed mood [Unknown]
  - Eyelid disorder [Unknown]
  - Dizziness [Recovering/Resolving]
  - Hypersensitivity [Unknown]

NARRATIVE: CASE EVENT DATE: 20240701
